FAERS Safety Report 6946260-4 (Version None)
Quarter: 2010Q3

REPORT INFORMATION
  Report Type: 
  Country: None (occurrence: None)
  Receive Date: 20100827
  Receipt Date: 20100819
  Transmission Date: 20110219
  Serious: Yes (Other)
  Sender: FDA-Public Use
  Company Number: US-AMGEN-QUU432851

PATIENT
  Sex: Female

DRUGS (3)
  1. NPLATE [Suspect]
     Indication: IDIOPATHIC THROMBOCYTOPENIC PURPURA
     Dates: start: 20090625, end: 20090827
  2. CYTOXAN [Concomitant]
     Dates: start: 19990101
  3. PREDNISONE [Concomitant]

REACTIONS (3)
  - PANCYTOPENIA [None]
  - THROMBOCYTOPENIA [None]
  - VAGINAL CANCER [None]
